FAERS Safety Report 10619265 (Version 2)
Quarter: 2014Q4

REPORT INFORMATION
  Report Type: Spontaneous
  Country: KR (occurrence: KR)
  Receive Date: 20141202
  Receipt Date: 20141202
  Transmission Date: 20150529
  Serious: Yes (Hospitalization)
  Sender: FDA-Public Use
  Company Number: KR-SA-2014SA152857

PATIENT
  Age: 81 Year
  Sex: Female

DRUGS (3)
  1. LOSARTAN [Concomitant]
     Active Substance: LOSARTAN
     Indication: HYPERTENSION
  2. ASPIRIN. [Concomitant]
     Active Substance: ASPIRIN
  3. CLOPIDOGREL BISULFATE. [Suspect]
     Active Substance: CLOPIDOGREL BISULFATE
     Indication: ANTIPLATELET THERAPY
     Route: 065

REACTIONS (12)
  - Thrombocytopenia [Recovered/Resolved]
  - Microangiopathic haemolytic anaemia [Unknown]
  - Blood lactate dehydrogenase increased [Recovered/Resolved]
  - Beta 2 microglobulin increased [Unknown]
  - Purpura [Unknown]
  - Pyrexia [Unknown]
  - Haemoglobinuria [Unknown]
  - Blood creatinine increased [Unknown]
  - Thrombotic thrombocytopenic purpura [Recovering/Resolving]
  - Urine protein/creatinine ratio increased [Unknown]
  - Proteinuria [Recovered/Resolved]
  - Muscular weakness [Unknown]
